FAERS Safety Report 12655126 (Version 2)
Quarter: 2016Q3

REPORT INFORMATION
  Report Type: Report from Study
  Country: US (occurrence: US)
  Receive Date: 20160816
  Receipt Date: 20160908
  Transmission Date: 20161109
  Serious: Yes (Other)
  Sender: FDA-Public Use
  Company Number: US-BAYER-2016-141102

PATIENT
  Sex: Female
  Weight: 81.63 kg

DRUGS (7)
  1. ADEMPAS [Suspect]
     Active Substance: RIOCIGUAT
     Indication: PULMONARY ARTERIAL HYPERTENSION
     Dosage: 1.5 MG, TID
     Route: 048
  2. NIFEDIPINE. [Concomitant]
     Active Substance: NIFEDIPINE
     Dosage: UNK
  3. ADEMPAS [Suspect]
     Active Substance: RIOCIGUAT
     Indication: PULMONARY ARTERIAL HYPERTENSION
     Dosage: UNK
     Dates: start: 20160623
  4. LASIX [Concomitant]
     Active Substance: FUROSEMIDE
     Dosage: UNK, PRN
  5. LASIX [Concomitant]
     Active Substance: FUROSEMIDE
     Dosage: UNK, OM
  6. ADEMPAS [Suspect]
     Active Substance: RIOCIGUAT
     Indication: PULMONARY ARTERIAL HYPERTENSION
     Dosage: 1.5 MG, TID
     Route: 048
  7. ADEMPAS [Suspect]
     Active Substance: RIOCIGUAT
     Indication: PULMONARY ARTERIAL HYPERTENSION
     Dosage: 1 MG, TID
     Route: 048

REACTIONS (11)
  - Retching [None]
  - Weight decreased [Unknown]
  - Diarrhoea [None]
  - Dizziness [Unknown]
  - Infected skin ulcer [None]
  - Pseudomonas test positive [None]
  - Nausea [None]
  - Diarrhoea [Unknown]
  - Hyperhidrosis [None]
  - Decreased appetite [None]
  - Skin ulcer [None]
